FAERS Safety Report 15665558 (Version 1)
Quarter: 2018Q4

REPORT INFORMATION
  Report Type: Spontaneous
  Country: US (occurrence: US)
  Receive Date: 20181117
  Receipt Date: 20181117
  Transmission Date: 20190205
  Serious: No
  Sender: FDA-Public Use
  Company Number: None

PATIENT
  Age: 45 Year
  Sex: Male

DRUGS (1)
  1. JANUVIA [Suspect]
     Active Substance: SITAGLIPTIN PHOSPHATE
     Indication: DIABETES MELLITUS
     Dates: start: 20180901, end: 20180919

REACTIONS (5)
  - Cardiac disorder [None]
  - Fluid retention [None]
  - Dyspnoea [None]
  - Swelling [None]
  - Cough [None]

NARRATIVE: CASE EVENT DATE: 20180901
